FAERS Safety Report 4302750-4 (Version None)
Quarter: 2004Q1

REPORT INFORMATION
  Report Type: 
  Country: None (occurrence: None)
  Receive Date: 20040224
  Receipt Date: 20030131
  Transmission Date: 20041129
  Serious: No
  Sender: FDA-Public Use
  Company Number: US-BRISTOL-MYERS SQUIBB COMPANY-12173274

PATIENT
  Age: 62 Year
  Sex: Male
  Weight: 78 kg

DRUGS (5)
  1. KENALOG [Suspect]
     Indication: ARTHRITIS
     Route: 051
     Dates: start: 20030127, end: 20030127
  2. HUMALOG [Concomitant]
  3. SYNTHROID [Concomitant]
  4. PRAVACHOL [Concomitant]
     Indication: PROPHYLAXIS
  5. ZESTRIL [Concomitant]
     Indication: PROPHYLAXIS

REACTIONS (1)
  - HYPERGLYCAEMIA [None]
